FAERS Safety Report 25390016 (Version 1)
Quarter: 2025Q2

REPORT INFORMATION
  Report Type: Spontaneous
  Country: US (occurrence: None)
  Receive Date: 20250602
  Receipt Date: 20250602
  Transmission Date: 20250717
  Serious: Yes (Death)
  Sender: FDA-CTU
  Company Number: None

PATIENT
  Age: 32 Year
  Sex: Male

DRUGS (14)
  1. COLLAGENASE SANTYL [Suspect]
     Active Substance: COLLAGENASE CLOSTRIDIUM HISTOLYTICUM
     Indication: Wound
     Dosage: FREQUENCY : DAILY;?
     Route: 061
     Dates: start: 20250430, end: 20250512
  2. ACETAMINOPHEN 500MG TABLETS [Concomitant]
  3. ENOXAPARIN 100MG/1ML SYR (10 X 1ML) [Concomitant]
  4. GABAPENTIN [Concomitant]
     Active Substance: GABAPENTIN
  5. HYDROMORPHONE 4MG TABLETS [Concomitant]
  6. LANSOPRAZOLE 15MG DR CAPSULES [Concomitant]
  7. LORAZEPAM [Concomitant]
     Active Substance: LORAZEPAM
  8. MELATONIN 10MG CAPSULES [Concomitant]
  9. MIRTAZAPINE [Concomitant]
     Active Substance: MIRTAZAPINE
  10. MULTIVITAMIN TABLETS [Concomitant]
  11. OXYBUTYNIN 2.5MG TABLETS [Concomitant]
  12. TIZANIDINE 2MG CAPSULES [Concomitant]
  13. VITAMIN C 250MG TABLETS [Concomitant]
  14. VITAMIN D 1,000IU SOFTGEL CAPSULES [Concomitant]

REACTIONS (1)
  - Pneumonia [None]

NARRATIVE: CASE EVENT DATE: 20250512
